FAERS Safety Report 19872316 (Version 1)
Quarter: 2021Q3

REPORT INFORMATION
  Report Type: Spontaneous
  Country: US (occurrence: US)
  Receive Date: 20210923
  Receipt Date: 20210923
  Transmission Date: 20211014
  Serious: Yes (Death)
  Sender: FDA-Public Use
  Company Number: None

PATIENT
  Age: 88 Year
  Sex: Female

DRUGS (12)
  1. LIDOCAINE. [Concomitant]
     Active Substance: LIDOCAINE
  2. MELATONIN [Concomitant]
     Active Substance: MELATONIN
  3. PROLIA [Suspect]
     Active Substance: DENOSUMAB
     Indication: SENILE OSTEOPOROSIS
     Dosage: ?          OTHER FREQUENCY:Q 6 MONTHS;?
     Route: 058
     Dates: start: 20200108, end: 20210814
  4. NYSTATIN. [Concomitant]
     Active Substance: NYSTATIN
  5. XARELTO [Concomitant]
     Active Substance: RIVAROXABAN
  6. DORZOLAMIDE [Concomitant]
     Active Substance: DORZOLAMIDE
  7. TYLENOL [Concomitant]
     Active Substance: ACETAMINOPHEN
  8. MULTI?VIT [Concomitant]
     Active Substance: VITAMINS
  9. SENNOSIDES. [Concomitant]
     Active Substance: SENNOSIDES
  10. TRAZODONE [Concomitant]
     Active Substance: TRAZODONE HYDROCHLORIDE
  11. TRIAMCINOLON [Concomitant]
  12. VIT B1 [Concomitant]
     Active Substance: THIAMINE HYDROCHLORIDE

REACTIONS (1)
  - Death [None]

NARRATIVE: CASE EVENT DATE: 20210814
